FAERS Safety Report 9717616 (Version 1)
Quarter: 2013Q4

REPORT INFORMATION
  Report Type: Spontaneous
  Country: US (occurrence: US)
  Receive Date: 20131127
  Receipt Date: 20131127
  Transmission Date: 20140711
  Serious: Yes (Other)
  Sender: FDA-Public Use
  Company Number: US-PFIZER INC-2013337377

PATIENT
  Sex: Female

DRUGS (4)
  1. LYRICA [Suspect]
     Dosage: UNK
  2. PREMARIN [Suspect]
     Dosage: UNK
  3. CHANTIX [Suspect]
     Dosage: UNK
  4. LIPITOR [Suspect]
     Dosage: UNK

REACTIONS (3)
  - Staphylococcal infection [Unknown]
  - Escherichia infection [Unknown]
  - Abscess [Unknown]
